FAERS Safety Report 7832307-X (Version None)
Quarter: 2011Q4

REPORT INFORMATION
  Report Type: 
  Country: None (occurrence: None)
  Receive Date: 20111022
  Receipt Date: 20111010
  Transmission Date: 20120403
  Serious: Yes (Other)
  Sender: FDA-Public Use
  Company Number: US-BAYER-2011-020095

PATIENT
  Sex: Female
  Weight: 81.633 kg

DRUGS (3)
  1. INHALER [Concomitant]
     Indication: ASTHMA
     Dosage: UNK
  2. BUPROPION HCL [Concomitant]
     Indication: DEPRESSION
     Dosage: UNK
     Dates: start: 20070101
  3. YAZ [Suspect]
     Indication: ACNE
     Dosage: UNK
     Dates: start: 20090801

REACTIONS (1)
  - GALLBLADDER NON-FUNCTIONING [None]
